FAERS Safety Report 18480793 (Version 3)
Quarter: 2020Q4

REPORT INFORMATION
  Report Type: Spontaneous
  Country: US (occurrence: US)
  Receive Date: 20201109
  Receipt Date: 20201113
  Transmission Date: 20210114
  Serious: No
  Sender: FDA-Public Use
  Company Number: US-PFIZER INC-2020431415

PATIENT
  Sex: Female

DRUGS (20)
  1. LEVAQUIN [Suspect]
     Active Substance: LEVOFLOXACIN
  2. PREDNISONE. [Suspect]
     Active Substance: PREDNISONE
  3. BENICAR [Suspect]
     Active Substance: OLMESARTAN MEDOXOMIL
  4. SUPARTZ [Suspect]
     Active Substance: HYALURONATE SODIUM
  5. ERYTHROMYCIN. [Suspect]
     Active Substance: ERYTHROMYCIN
  6. FLAGYL [Suspect]
     Active Substance: METRONIDAZOLE\METRONIDAZOLE HYDROCHLORIDE
  7. UNIVASC [Suspect]
     Active Substance: MOEXIPRIL HYDROCHLORIDE
  8. ATARAX [Suspect]
     Active Substance: HYDROXYZINE HYDROCHLORIDE
  9. CLINDAMYCIN HCL [Suspect]
     Active Substance: CLINDAMYCIN HYDROCHLORIDE
  10. CELESTONE [Suspect]
     Active Substance: BETAMETHASONE
  11. PENICILLIN G POTASSIUM. [Suspect]
     Active Substance: PENICILLIN G POTASSIUM
  12. TENORMIN [Suspect]
     Active Substance: ATENOLOL
  13. MAGNESIUM HYDROXIDE. [Suspect]
     Active Substance: MAGNESIUM HYDROXIDE
  14. CODEINE [Suspect]
     Active Substance: CODEINE
  15. PROCARDIA [Suspect]
     Active Substance: NIFEDIPINE
  16. ZITHROMAX [Suspect]
     Active Substance: AZITHROMYCIN DIHYDRATE
  17. DEMEROL [Suspect]
     Active Substance: MEPERIDINE HYDROCHLORIDE
  18. LEVBID [Suspect]
     Active Substance: HYOSCYAMINE SULFATE
  19. BACLOFEN. [Suspect]
     Active Substance: BACLOFEN
  20. XYLOCAINE [Suspect]
     Active Substance: LIDOCAINE HYDROCHLORIDE

REACTIONS (1)
  - Drug hypersensitivity [Unknown]
